FAERS Safety Report 4492737-3 (Version None)
Quarter: 2004Q4

REPORT INFORMATION
  Report Type: 
  Country: None (occurrence: None)
  Receive Date: 20041104
  Receipt Date: 20021203
  Transmission Date: 20050328
  Serious: Yes (Other)
  Sender: FDA-Public Use
  Company Number: US-AMGEN-US024404

PATIENT
  Age: 82 Year
  Sex: Female
  Weight: 50.4 kg

DRUGS (13)
  1. EPOGEN [Suspect]
     Indication: ANAEMIA OF MALIGNANT DISEASE
     Route: 058
     Dates: start: 20010607, end: 20020904
  2. FLUDARABINE PHOSPHATE [Concomitant]
     Dates: start: 20010530, end: 20011115
  3. ANZEMET [Concomitant]
     Dates: start: 20010531, end: 20011105
  4. ALLOPURINOL [Concomitant]
     Dates: start: 20010530, end: 20011210
  5. SEPTRA [Concomitant]
     Dates: start: 20010530, end: 20011210
  6. LEUKINE [Concomitant]
     Dates: start: 20010709, end: 20011125
  7. TRIAMTERENE AND HYDROCHLOROTHIAZIDE [Concomitant]
  8. POTASSIUM [Concomitant]
  9. CLONAZEPAM [Concomitant]
  10. ESTROPIPATE [Concomitant]
  11. SENOKOT [Concomitant]
  12. PREDNISONE [Concomitant]
  13. IMMUNE GLOBULIN (HUMAN) [Concomitant]

REACTIONS (4)
  - APLASIA PURE RED CELL [None]
  - BONE MARROW DEPRESSION [None]
  - HAEMOLYTIC ANAEMIA [None]
  - HYPOGAMMAGLOBULINAEMIA [None]
